FAERS Safety Report 5328854-5 (Version None)
Quarter: 2007Q2

REPORT INFORMATION
  Report Type: 
  Country: None (occurrence: None)
  Receive Date: 20070518
  Receipt Date: 20070507
  Transmission Date: 20071010
  Serious: Yes (Disabling)
  Sender: FDA-Public Use
  Company Number: NL-GILEAD-2007-0012067

PATIENT
  Sex: Female
  Weight: 68 kg

DRUGS (2)
  1. HEPSERA [Suspect]
     Indication: HEPATITIS B
     Route: 048
     Dates: start: 20060911
  2. PEG-INTERFERON ALFA 2A [Suspect]
     Indication: HEPATITIS B
     Route: 058
     Dates: start: 20060911

REACTIONS (1)
  - CATARACT [None]
